FAERS Safety Report 4761109-6 (Version None)
Quarter: 2005Q3

REPORT INFORMATION
  Report Type: 
  Country: None (occurrence: None)
  Receive Date: 20050901
  Receipt Date: 20050420
  Transmission Date: 20060218
  Serious: Yes (Life-Threatening)
  Sender: FDA-Public Use
  Company Number: 2005FR-00245

PATIENT
  Age: 84 Year
  Sex: Female

DRUGS (12)
  1. ASPIRIN [Suspect]
     Indication: HYPERTENSION
     Dosage: 75 MG OD ORAL
     Route: 048
     Dates: start: 19960813, end: 20050323
  2. ASPIRIN [Suspect]
     Indication: PAIN
     Dosage: 75 MG OD ORAL
     Route: 048
     Dates: start: 19960813, end: 20050323
  3. SIMVASTATIN [Concomitant]
  4. DILTIAZEM [Concomitant]
  5. ATENOLOL [Concomitant]
  6. TRIMETHOPRIM [Concomitant]
  7. ISMN [Concomitant]
  8. CO-DYDRAMOL [Concomitant]
  9. FUROSEMIDE [Concomitant]
  10. GTN [Concomitant]
  11. FLUCLOXACILLIN [Concomitant]
  12. SPIRONOLACTONE [Concomitant]

REACTIONS (1)
  - GASTROINTESTINAL HAEMORRHAGE [None]
